FAERS Safety Report 4345727-5 (Version None)
Quarter: 2004Q2

REPORT INFORMATION
  Report Type: 
  Country: None (occurrence: None)
  Receive Date: 20040421
  Receipt Date: 20040409
  Transmission Date: 20050107
  Serious: Yes (Hospitalization)
  Sender: FDA-Public Use
  Company Number: 04P-056-0257489-00

PATIENT
  Age: 22 Year
  Sex: Female
  Weight: 58 kg

DRUGS (4)
  1. SEVORANE (ULTANE LIQUID) (SVOFLURANE) (SEVOFLURANE) [Suspect]
     Indication: ANAESTHESIA
     Dosage: 2 %, 10 MINUTES, INHALATION
     Route: 055
     Dates: start: 20040330, end: 20040330
  2. MIDAZOLAM HCL [Suspect]
     Indication: ANAESTHESIA
     Dosage: 2 MG, INTRAVENOUS
     Route: 042
     Dates: start: 20040330, end: 20040330
  3. PROPOFOL [Suspect]
     Indication: ANAESTHESIA
     Dosage: 120 MG, INTRAVENOUS
     Route: 042
     Dates: start: 20040330, end: 20040330
  4. SUFENTANIL [Suspect]
     Indication: ANAESTHESIA
     Dosage: 15 MCG, INTRAVENOUS
     Route: 042
     Dates: start: 20040330, end: 20040330

REACTIONS (2)
  - ACUTE PULMONARY OEDEMA [None]
  - LARYNGOSPASM [None]
